FAERS Safety Report 4440198-2 (Version None)
Quarter: 2004Q3

REPORT INFORMATION
  Report Type: 
  Country: None (occurrence: None)
  Receive Date: 20040901
  Receipt Date: 20040901
  Transmission Date: 20050211
  Serious: Yes (Other)
  Sender: FDA-Public Use
  Company Number: None

PATIENT
  Age: 58 Year
  Sex: Male
  Weight: 123.3784 kg

DRUGS (6)
  1. COUMADIN [Suspect]
     Indication: ANTICOAGULANT THERAPY
     Dosage: 15MG M,TH; 10 QD PO
     Route: 048
     Dates: start: 20040115
  2. UROXATRAL [Suspect]
     Indication: BENIGN PROSTATIC HYPERPLASIA
     Dosage: 10 MG, QD, PO
     Route: 048
     Dates: start: 20040729
  3. ACTOS [Concomitant]
  4. TOPROL-XL [Concomitant]
  5. M.V.I. [Concomitant]
  6. TYLENOL [Concomitant]

REACTIONS (3)
  - DRUG INTERACTION [None]
  - INTERNATIONAL NORMALISED RATIO INCREASED [None]
  - PROTHROMBIN TIME PROLONGED [None]
